FAERS Safety Report 17145822 (Version 1)
Quarter: 2019Q4

REPORT INFORMATION
  Report Type: Spontaneous
  Country: US (occurrence: US)
  Receive Date: 20191212
  Receipt Date: 20191212
  Transmission Date: 20200122
  Serious: No
  Sender: FDA-Public Use
  Company Number: US-BIOGEN-2018BI00531305

PATIENT
  Sex: Female

DRUGS (2)
  1. TECFIDERA [Suspect]
     Active Substance: DIMETHYL FUMARATE
     Indication: MULTIPLE SCLEROSIS
     Dosage: MAINTENANCE DOSE
     Route: 050
     Dates: start: 2015
  2. TECFIDERA [Suspect]
     Active Substance: DIMETHYL FUMARATE
     Route: 048
     Dates: start: 20170928

REACTIONS (6)
  - Product dose omission [Recovered/Resolved]
  - White blood cell count decreased [Recovered/Resolved]
  - Anxiety [Recovered/Resolved]
  - Flushing [Unknown]
  - Hot flush [Recovered/Resolved]
  - Multiple sclerosis [Unknown]
